FAERS Safety Report 10995907 (Version 3)
Quarter: 2015Q2

REPORT INFORMATION
  Report Type: Report from Study
  Country: US (occurrence: US)
  Receive Date: 20150407
  Receipt Date: 20150512
  Transmission Date: 20150821
  Serious: Yes (Death, Hospitalization)
  Sender: FDA-Public Use
  Company Number: US-ACTELION-A-US2015-115769

PATIENT
  Age: 2 Year
  Sex: Male

DRUGS (3)
  1. VELETRI [Suspect]
     Active Substance: EPOPROSTENOL
     Indication: PULMONARY ARTERIAL HYPERTENSION
     Dosage: 43 NG/KG, PER MIN / 72 ML/DAY
     Route: 042
     Dates: end: 20150325
  2. TRACLEER [Suspect]
     Active Substance: BOSENTAN\BOSENTAN MONOHYDRATE
     Indication: PULMONARY ARTERIAL HYPERTENSION
     Dosage: 62.5 MG, BID
     Route: 048
     Dates: end: 20150325
  3. SILDENAFIL. [Concomitant]
     Active Substance: SILDENAFIL
     Dosage: UNK
     Dates: end: 20150325

REACTIONS (10)
  - Asthenia [Unknown]
  - Pulmonary hypertension [Unknown]
  - Circulatory collapse [Fatal]
  - Incorrect dose administered by device [Fatal]
  - Device connection issue [Fatal]
  - Neurogenic shock [Fatal]
  - Respiratory distress [Unknown]
  - Cough [Unknown]
  - Oxygen saturation decreased [Unknown]
  - Hypoxia [Unknown]

NARRATIVE: CASE EVENT DATE: 20150325
